FAERS Safety Report 5524446-3 (Version None)
Quarter: 2007Q4

REPORT INFORMATION
  Report Type: 
  Country: None (occurrence: None)
  Receive Date: 20071122
  Receipt Date: 20071114
  Transmission Date: 20080405
  Serious: Yes (Life-Threatening)
  Sender: FDA-Public Use
  Company Number: JP-JNJFOC-20071101570

PATIENT
  Sex: Female

DRUGS (17)
  1. LEVOFLOXACIN [Suspect]
     Indication: DRUG USE FOR UNKNOWN INDICATION
     Route: 048
     Dates: start: 20070819, end: 20071011
  2. PYRAMIDE [Concomitant]
     Indication: DRUG USE FOR UNKNOWN INDICATION
     Route: 065
  3. RIFADIN [Concomitant]
     Indication: TUBERCULOSIS
     Route: 048
     Dates: start: 20070819, end: 20071016
  4. ISCOTIN [Concomitant]
     Indication: TUBERCULOSIS
     Route: 048
     Dates: start: 20070819, end: 20071016
  5. VITAMEDIN S [Concomitant]
     Route: 065
  6. SALOBEL [Concomitant]
     Route: 065
  7. DIOVAN [Concomitant]
     Route: 065
  8. TRICHLORMETHIAZIDE [Concomitant]
     Route: 065
  9. MEVALOTIN [Concomitant]
     Route: 065
  10. AZELASTINE HCL [Concomitant]
     Route: 065
  11. ADONA [Concomitant]
     Route: 065
  12. CARNACULIN [Concomitant]
     Route: 065
  13. NORVASC [Concomitant]
     Route: 065
  14. MEXIRATE [Concomitant]
     Route: 065
  15. LASIX [Concomitant]
     Route: 065
  16. MONEDAX [Concomitant]
     Route: 065
  17. MAGLAX [Concomitant]
     Route: 065

REACTIONS (8)
  - ACUTE RESPIRATORY FAILURE [None]
  - CANDIDA PNEUMONIA [None]
  - DRUG INEFFECTIVE [None]
  - INTERSTITIAL LUNG DISEASE [None]
  - LYMPHOCYTE STIMULATION TEST POSITIVE [None]
  - PNEUMOCYSTIS JIROVECI INFECTION [None]
  - PNEUMONIA [None]
  - PNEUMONIA VIRAL [None]
